FAERS Safety Report 12304612 (Version 1)
Quarter: 2016Q2

REPORT INFORMATION
  Report Type: Spontaneous
  Country: US (occurrence: None)
  Receive Date: 20160425
  Receipt Date: 20160425
  Transmission Date: 20160815
  Serious: Yes (Disabling)
  Sender: FDA-Public Use
  Company Number: None

PATIENT
  Age: 63 Year
  Sex: Female
  Weight: 52.16 kg

DRUGS (24)
  1. KETOCONAZOLE. [Concomitant]
     Active Substance: KETOCONAZOLE
  2. RESPIRATORY VEST [Concomitant]
  3. MAGNESIUM [Concomitant]
     Active Substance: MAGNESIUM
  4. ACIDOLPHILIS [Concomitant]
  5. ALBUTEROL (VENTOLIN) [Concomitant]
  6. FISH OIL [Concomitant]
     Active Substance: FISH OIL
  7. CALCIUM/MAGNESIUM/POTASSIUM [Concomitant]
  8. AZO PROBIOTIC: YEAST [Concomitant]
  9. DYRENIUM [Concomitant]
     Active Substance: TRIAMTERENE
  10. MAXALT - GENERIC RIZOTRIPTAN [Concomitant]
  11. MULTI-VITAMIN [Concomitant]
     Active Substance: .ALPHA.-TOCOPHEROL ACETATE, DL-\ASCORBIC ACID\CYANOCOBALAMIN\FLUORIDE ION\FOLIC ACID\NIACIN\PYRIDOXINE\RIBOFLAVIN\THIAMINE\VITAMIN A\VITAMIN D
  12. NIACIN. [Concomitant]
     Active Substance: NIACIN
  13. RIZATRIPTAN ODT 10 MG TABLETS [Suspect]
     Active Substance: RIZATRIPTAN
     Indication: MIGRAINE
     Dosage: 1 PILL MAX OF 3 TABLETS PER DAY DISSOLVED ONE TABLET ON TONGUE
     Dates: start: 20150415, end: 20150415
  14. NEBULIZER [Concomitant]
     Active Substance: DEVICE
  15. ALBUTEROL. [Concomitant]
     Active Substance: ALBUTEROL
  16. DIGESTIVE ENZYME (ENZYMEDICA GOLD) [Concomitant]
  17. ASPIRIN. [Concomitant]
     Active Substance: ASPIRIN
  18. MECLIZINE [Concomitant]
     Active Substance: MECLIZINE HYDROCHLORIDE
  19. CLINDAMYCIN [Concomitant]
     Active Substance: CLINDAMYCIN\CLINDAMYCIN PHOSPHATE
  20. GUAIFENESIN. [Concomitant]
     Active Substance: GUAIFENESIN
  21. VITAMIN C [Concomitant]
     Active Substance: ASCORBIC ACID
  22. CYCLOBENZAPRINE [Concomitant]
     Active Substance: CYCLOBENZAPRINE
  23. BLOOD BUILDER [Concomitant]
  24. COQ10 [Concomitant]
     Active Substance: UBIDECARENONE

REACTIONS (2)
  - Glossodynia [None]
  - Product formulation issue [None]

NARRATIVE: CASE EVENT DATE: 20160415
